FAERS Safety Report 14861635 (Version 1)
Quarter: 2018Q2

REPORT INFORMATION
  Report Type: Spontaneous
  Country: US (occurrence: US)
  Receive Date: 20180422
  Receipt Date: 20180422
  Transmission Date: 20180711
  Serious: Yes (Disabling)
  Sender: FDA-Public Use
  Company Number: None

PATIENT
  Age: 39 Year
  Sex: Female

DRUGS (1)
  1. VIVELLE-DOT [Suspect]
     Active Substance: ESTRADIOL
     Indication: OVARIAN CANCER
     Dosage: ?          OTHER STRENGTH:UNKNOWN;?
     Route: 062
     Dates: start: 20180414, end: 20180422

REACTIONS (3)
  - Expired product administered [None]
  - Hysterectomy [None]
  - Discomfort [None]

NARRATIVE: CASE EVENT DATE: 20180422
